FAERS Safety Report 9804155 (Version 1)
Quarter: 2014Q1

REPORT INFORMATION
  Report Type: Spontaneous
  Country: AU (occurrence: AU)
  Receive Date: 20140108
  Receipt Date: 20140108
  Transmission Date: 20141002
  Serious: Yes (Other)
  Sender: FDA-Public Use
  Company Number: PHHY2014AU000532

PATIENT
  Sex: Male

DRUGS (2)
  1. LAMOTRIGINE SANDOZ [Suspect]
     Indication: BIPOLAR DISORDER
     Dosage: 50 MG, UNK
     Route: 048
  2. LAMOTRIGINE SANDOZ [Suspect]
     Dosage: 25 MG, UNK
     Route: 048

REACTIONS (5)
  - Loss of consciousness [Unknown]
  - Convulsion [Unknown]
  - Eye movement disorder [Unknown]
  - Fall [Unknown]
  - Drug withdrawal syndrome [Unknown]
